FAERS Safety Report 12820509 (Version 1)
Quarter: 2016Q4

REPORT INFORMATION
  Report Type: Spontaneous
  Country: CH (occurrence: CH)
  Receive Date: 20161006
  Receipt Date: 20161006
  Transmission Date: 20170207
  Serious: Yes (Hospitalization, Disabling, Other)
  Sender: FDA-Public Use
  Company Number: CH-BAXTER-2016BAX048740

PATIENT
  Age: 25 Year
  Sex: Female
  Weight: 80 kg

DRUGS (19)
  1. NEULASTA [Suspect]
     Active Substance: PEGFILGRASTIM
     Indication: PRODUCT USED FOR UNKNOWN INDICATION
     Dosage: PRE FILLED SYRINGES, 1 SEPARATE DOSE
     Route: 058
     Dates: start: 20160810, end: 20160810
  2. ETOPOPHOS [Suspect]
     Active Substance: ETOPOSIDE PHOSPHATE
     Dosage: 2ND CYCLE
     Route: 065
     Dates: start: 20160830, end: 20160902
  3. DIFLUCAN [Suspect]
     Active Substance: FLUCONAZOLE
     Indication: PRODUCT USED FOR UNKNOWN INDICATION
     Route: 065
     Dates: start: 20160815, end: 20160815
  4. UROMITEXAN 400 MG [Suspect]
     Active Substance: MESNA
     Dosage: VIALS, 4146 MG (2249.78 MG/M2) 1X/THE AND PER 1382 MG BRIEF INFBOLUS
     Route: 040
  5. TARGIN [Concomitant]
     Active Substance: NALOXONE HYDROCHLORIDE\OXYCODONE HYDROCHLORIDE
     Indication: PRODUCT USED FOR UNKNOWN INDICATION
     Route: 065
  6. HOLOXAN 2 G [Suspect]
     Active Substance: IFOSFAMIDE
     Indication: PRODUCT USED FOR UNKNOWN INDICATION
     Dosage: INFUSION AMPOULES, 1 CYCLE OF ICE REGIMEN
     Route: 041
     Dates: start: 20160806, end: 20160808
  7. DAFALGAN [Concomitant]
     Active Substance: ACETAMINOPHEN
     Indication: PRODUCT USED FOR UNKNOWN INDICATION
     Route: 065
  8. HOLOXAN 2 G [Suspect]
     Active Substance: IFOSFAMIDE
     Dosage: INFUSION AMPOULES
     Route: 041
  9. PANTOZOL [Suspect]
     Active Substance: PANTOPRAZOLE SODIUM
     Indication: PRODUCT USED FOR UNKNOWN INDICATION
     Route: 065
     Dates: end: 20160809
  10. CARBOPLATIN. [Suspect]
     Active Substance: CARBOPLATIN
     Indication: PRODUCT USED FOR UNKNOWN INDICATION
     Dosage: SECOND CYCLE OF CHEMOTHERAPY
     Route: 065
     Dates: start: 20160830, end: 20160902
  11. MOVICOL [Concomitant]
     Active Substance: POLYETHYLENE GLYCOL 3350\POTASSIUM CHLORIDE\SODIUM BICARBONATE\SODIUM CHLORIDE
     Indication: PRODUCT USED FOR UNKNOWN INDICATION
     Route: 065
  12. TAZOBAC [Suspect]
     Active Substance: PIPERACILLIN SODIUM\TAZOBACTAM SODIUM
     Indication: PRODUCT USED FOR UNKNOWN INDICATION
     Route: 065
     Dates: start: 20160815, end: 20160819
  13. ETOPOPHOS [Suspect]
     Active Substance: ETOPOSIDE PHOSPHATE
     Indication: PRODUCT USED FOR UNKNOWN INDICATION
     Route: 065
     Dates: start: 20160806, end: 20160808
  14. HEPARIN NA B. BRAUN [Concomitant]
     Indication: PRODUCT USED FOR UNKNOWN INDICATION
     Dosage: AMPOULES
     Route: 065
     Dates: start: 20160901
  15. BRUFEN [Concomitant]
     Active Substance: IBUPROFEN
     Indication: PRODUCT USED FOR UNKNOWN INDICATION
     Route: 065
  16. UROMITEXAN 400 MG [Suspect]
     Active Substance: MESNA
     Indication: PRODUCT USED FOR UNKNOWN INDICATION
     Dosage: VIALS, 4146 MG (2249.78 MG/M2) 1X/THE AND PER 1382 MG BRIEF INFBOLUS
     Route: 040
     Dates: start: 20160806, end: 20160808
  17. NEULASTA [Suspect]
     Active Substance: PEGFILGRASTIM
     Dosage: PRE FILLED SYRINGES, 1 SEPARATE DOSE, RE-ADMINISTERED
     Route: 058
     Dates: start: 20160903
  18. CARBOPLATIN. [Suspect]
     Active Substance: CARBOPLATIN
     Dosage: 1 SEPARATE DOSE
     Route: 065
     Dates: start: 20160901, end: 20160901
  19. DUPHALAC [Concomitant]
     Active Substance: LACTULOSE
     Indication: PRODUCT USED FOR UNKNOWN INDICATION
     Route: 065

REACTIONS (5)
  - Renal tubular necrosis [Unknown]
  - Nephrogenic diabetes insipidus [Not Recovered/Not Resolved]
  - Fanconi syndrome acquired [Not Recovered/Not Resolved]
  - Acute kidney injury [Unknown]
  - Febrile neutropenia [Recovered/Resolved]

NARRATIVE: CASE EVENT DATE: 20160812
